FAERS Safety Report 8587702-0 (Version None)
Quarter: 2012Q3

REPORT INFORMATION
  Report Type: 
  Country: None (occurrence: None)
  Receive Date: 20120813
  Receipt Date: 20120803
  Transmission Date: 20120928
  Serious: Yes (Hospitalization)
  Sender: FDA-Public Use
  Company Number: PHHY2012US067107

PATIENT
  Age: 8 Year
  Sex: Male

DRUGS (5)
  1. CEFADROXIL [Concomitant]
     Dosage: 250 MG, BID
  2. CYCLOSPORINE [Suspect]
     Indication: RENAL TRANSPLANT
     Dosage: 125 MG, BID
  3. MYCOPHENOLATE MOFETIL [Suspect]
     Indication: IMMUNOSUPPRESSION
     Dosage: 500 MG, BID
  4. PREDNISONE TAB [Suspect]
     Indication: IMMUNOSUPPRESSION
     Dosage: 5 MG/ DAY
  5. CYCLOSPORINE [Suspect]
     Indication: IMMUNOSUPPRESSION

REACTIONS (24)
  - BLOOD CALCIUM DECREASED [None]
  - PLEURAL EFFUSION [None]
  - BLOOD UREA INCREASED [None]
  - PCO2 DECREASED [None]
  - POST TRANSPLANT LYMPHOPROLIFERATIVE DISORDER [None]
  - EPSTEIN-BARR VIRUS INFECTION [None]
  - ERYTHEMA [None]
  - BACILLARY ANGIOMATOSIS [None]
  - HYPOALBUMINAEMIA [None]
  - HYPERKALAEMIA [None]
  - LYMPH NODE PAIN [None]
  - LYMPHADENOPATHY MEDIASTINAL [None]
  - NORMOCHROMIC NORMOCYTIC ANAEMIA [None]
  - BLOOD CREATININE INCREASED [None]
  - LYMPHADENOPATHY [None]
  - ASCITES [None]
  - CAT SCRATCH DISEASE [None]
  - HYPONATRAEMIA [None]
  - BLOOD LACTATE DEHYDROGENASE INCREASED [None]
  - PYREXIA [None]
  - PAPULE [None]
  - LEUKOPENIA [None]
  - BLOOD MAGNESIUM DECREASED [None]
  - THROMBOCYTOPENIA [None]
